APPROVED DRUG PRODUCT: LINEZOLID
Active Ingredient: LINEZOLID
Strength: 200MG/100ML (2MG/ML)
Dosage Form/Route: SOLUTION;INTRAVENOUS
Application: A207001 | Product #001 | TE Code: AP
Applicant: HQ SPECIALTY PHARMA CORP
Approved: Jul 7, 2017 | RLD: No | RS: No | Type: RX